FAERS Safety Report 8500458-2 (Version None)
Quarter: 2012Q3

REPORT INFORMATION
  Report Type: 
  Country: None (occurrence: None)
  Receive Date: 20120710
  Receipt Date: 20120703
  Transmission Date: 20120928
  Serious: Yes (Death, Life-Threatening)
  Sender: FDA-Public Use
  Company Number: JP-GLAXOSMITHKLINE-B0813023A

PATIENT
  Sex: Female
  Weight: 39.6 kg

DRUGS (33)
  1. LEUNASE [Concomitant]
     Indication: NEOPLASM MALIGNANT
     Route: 042
     Dates: start: 20110410, end: 20110410
  2. DECADRON [Concomitant]
     Dosage: 3.5MG PER DAY
     Route: 048
     Dates: start: 20110501, end: 20110504
  3. SOLITA-T [Concomitant]
     Route: 042
     Dates: start: 20110423, end: 20110428
  4. DEXAMETHASONE [Suspect]
     Dosage: 13.2MG PER DAY
     Dates: start: 20110421, end: 20110427
  5. DAUNORUBICIN HCL [Concomitant]
     Indication: NEOPLASM MALIGNANT
     Route: 042
     Dates: start: 20110409, end: 20110409
  6. METHOTREXATE [Concomitant]
     Indication: NEOPLASM MALIGNANT
     Route: 042
     Dates: start: 20110405, end: 20110406
  7. MUCOSTA [Concomitant]
     Route: 048
     Dates: start: 20110505, end: 20110505
  8. DEXAMETHASONE [Suspect]
     Dosage: 6.6MG PER DAY
     Dates: start: 20110428, end: 20110429
  9. DEXAMETHASONE [Suspect]
     Dosage: 6.6MG PER DAY
     Dates: start: 20110506, end: 20110506
  10. DECADRON [Concomitant]
     Indication: NEOPLASM MALIGNANT
     Dosage: 6.5MG PER DAY
     Route: 048
     Dates: start: 20110430, end: 20110430
  11. HYDROCORTISONE SODIUM SUCCINATE [Concomitant]
     Route: 042
     Dates: start: 20110428, end: 20110428
  12. FUROSEMIDE [Concomitant]
     Route: 042
     Dates: start: 20110425, end: 20110428
  13. FENTANYL [Concomitant]
     Indication: PAIN IN EXTREMITY
     Route: 042
     Dates: start: 20110506, end: 20110506
  14. KETOPROFEN [Concomitant]
     Route: 061
     Dates: start: 20110505, end: 20110505
  15. FILDESIN [Concomitant]
     Indication: NEOPLASM MALIGNANT
     Route: 042
     Dates: start: 20110405, end: 20110405
  16. SODIUM BICARBONATE [Concomitant]
     Route: 042
     Dates: start: 20110423, end: 20110428
  17. POTASSIUM CHLORIDE [Concomitant]
     Route: 042
     Dates: start: 20110506, end: 20110506
  18. PENTAZOCINE LACTATE [Concomitant]
     Indication: PAIN
     Dates: start: 20110506, end: 20110506
  19. FUROSEMIDE [Concomitant]
     Route: 048
     Dates: start: 20110423, end: 20110423
  20. POLARAMINE [Concomitant]
     Dates: start: 20110428, end: 20110428
  21. ATARAX [Concomitant]
     Indication: PAIN
     Dates: start: 20110506, end: 20110506
  22. BOSMIN [Concomitant]
     Indication: CARDIO-RESPIRATORY ARREST
     Dates: start: 20110506, end: 20110506
  23. LORCAM [Concomitant]
     Route: 048
     Dates: start: 20110505, end: 20110505
  24. ARRANON [Suspect]
     Indication: T-CELL TYPE ACUTE LEUKAEMIA
     Dosage: 650MGM2 PER DAY
     Route: 042
     Dates: start: 20110423, end: 20110427
  25. DEXAMETHASONE [Suspect]
     Indication: NEOPLASM MALIGNANT
     Dosage: 6.6MG PER DAY
     Dates: start: 20110420, end: 20110420
  26. IFOSFAMIDE [Concomitant]
     Indication: NEOPLASM MALIGNANT
     Dates: start: 20110405, end: 20110409
  27. ALLOPURINOL [Concomitant]
     Indication: PROPHYLAXIS
     Route: 048
     Dates: start: 20110424, end: 20110428
  28. GRANISETRON [Concomitant]
     Indication: PROPHYLAXIS
     Route: 042
     Dates: start: 20110423, end: 20110427
  29. DIAMOX [Concomitant]
     Dates: start: 20110423, end: 20110428
  30. SEISHOKU [Concomitant]
     Dates: start: 20110423, end: 20110428
  31. PLATELETS [Concomitant]
     Indication: WHITE BLOOD CELL COUNT DECREASED
     Dates: start: 20110428, end: 20110428
  32. KETALAR [Concomitant]
     Indication: ANAESTHESIA PROCEDURE
     Route: 042
     Dates: start: 20110506, end: 20110506
  33. LOXOPROFEN [Concomitant]
     Route: 048
     Dates: start: 20110505, end: 20110505

REACTIONS (7)
  - VENTRICULAR ARRHYTHMIA [None]
  - HEPATIC FUNCTION ABNORMAL [None]
  - ACIDOSIS [None]
  - HYPOTENSION [None]
  - HYPERKALAEMIA [None]
  - HYPERPHOSPHATAEMIA [None]
  - COAGULATION TIME ABNORMAL [None]
